FAERS Safety Report 6587803-2 (Version None)
Quarter: 2010Q1

REPORT INFORMATION
  Report Type: 
  Country: None (occurrence: None)
  Receive Date: 20100218
  Receipt Date: 20100208
  Transmission Date: 20100710
  Serious: Yes (Other)
  Sender: FDA-Public Use
  Company Number: PHHY2010IE06947

PATIENT
  Age: 52 Year
  Sex: Female

DRUGS (3)
  1. CLOZAPINE [Suspect]
     Indication: SCHIZOPHRENIA, PARANOID TYPE
     Dosage: 25 MG IN THE MORNING AND 75 MG IN THE EVENING,
  2. CLOZAPINE [Suspect]
     Dosage: 100 MG IN THE MORNING AND 250 MG IN THE EVENING,
  3. CLOZAPINE [Suspect]
     Dosage: 50 MG, UNK

REACTIONS (6)
  - ABDOMINAL PAIN [None]
  - AGITATION [None]
  - HEPATOTOXICITY [None]
  - MALAISE [None]
  - PSYCHOTIC DISORDER [None]
  - SLEEP DISORDER [None]
